FAERS Safety Report 4751862-X (Version None)
Quarter: 2005Q3

REPORT INFORMATION
  Report Type: 
  Country: None (occurrence: None)
  Receive Date: 20050822
  Receipt Date: 20050620
  Transmission Date: 20060218
  Serious: No
  Sender: FDA-Public Use
  Company Number: PHEH2005US06938

PATIENT
  Sex: Female

DRUGS (3)
  1. ZELNORM [Suspect]
     Indication: IRRITABLE BOWEL SYNDROME
     Dates: start: 20050501
  2. PAXIL [Concomitant]
  3. METHADONE HCL [Concomitant]

REACTIONS (2)
  - HYPERHIDROSIS [None]
  - NERVOUSNESS [None]
